FAERS Safety Report 11568502 (Version 2)
Quarter: 2015Q4

REPORT INFORMATION
  Report Type: Spontaneous
  Country: DE (occurrence: DE)
  Receive Date: 20150929
  Receipt Date: 20151013
  Transmission Date: 20160304
  Serious: Yes (Hospitalization, Other)
  Sender: FDA-Public Use
  Company Number: DE-AMGEN-DEUSP2015099752

PATIENT
  Age: 46 Year
  Sex: Male
  Weight: 87 kg

DRUGS (5)
  1. ORFIRIL [Concomitant]
     Active Substance: VALPROIC ACID
     Dosage: 1 TABLET DAILY
     Route: 048
  2. FOLIC ACID. [Concomitant]
     Active Substance: FOLIC ACID
     Dosage: 1 TABLET 5 MG, WEEKLY
     Route: 048
     Dates: start: 20150427, end: 20150914
  3. BACLOFEN. [Concomitant]
     Active Substance: BACLOFEN
     Dosage: 25 MG TWICE DAILY 1 TABLET
     Route: 048
  4. ENBREL [Suspect]
     Active Substance: ETANERCEPT
     Indication: PSORIATIC ARTHROPATHY
     Dosage: 50 MG, WEEKLY
     Route: 058
     Dates: start: 201403, end: 201509
  5. METHOTREXATE (METHOTREXATE SODIUM) [Concomitant]
     Active Substance: METHOTREXATE SODIUM
     Dosage: 1 TABLET 10 MG, WEEKLY
     Route: 048
     Dates: start: 20150427, end: 20150914

REACTIONS (2)
  - Condition aggravated [Not Recovered/Not Resolved]
  - Syringomyelia [Not Recovered/Not Resolved]

NARRATIVE: CASE EVENT DATE: 20150907
